FAERS Safety Report 5136857-9 (Version None)
Quarter: 2006Q4

REPORT INFORMATION
  Report Type: 
  Country: None (occurrence: None)
  Receive Date: 20061023
  Receipt Date: 20061009
  Transmission Date: 20070319
  Serious: Yes (Hospitalization, Other)
  Sender: FDA-Public Use
  Company Number: 2006082714

PATIENT
  Age: 50 Year
  Sex: Female

DRUGS (12)
  1. LYRICA [Suspect]
     Indication: PAIN
     Dosage: 300 MG (150 MG, 2 IN 1 D)
     Dates: start: 20060620
  2. IXEL (MILNACIPRAN) [Concomitant]
  3. DURAGESIC-100 [Concomitant]
  4. ALL OTHER THERAPEUTIC PRODUCTS (ALL OTHER THERAPEUTIC PRODUCTS) [Concomitant]
  5. HEPT-A-MYL (HEPTAMINOL HDYROCHLORIDE) [Concomitant]
  6. ZOLPIDEM TARTRATE [Concomitant]
  7. MORPHINE SULFATE [Concomitant]
  8. FENTANYL [Concomitant]
  9. UTROGESTAN (PROGESTRONE) [Concomitant]
  10. ESTRADIOL [Concomitant]
  11. MILNACIPRAN HYDROCHLORIDE (MILNACIPRAN HYDROCHLORIDE) [Concomitant]
  12. PROPRANOLOL HYDROCHLORIDE [Concomitant]

REACTIONS (15)
  - ASTHENIA [None]
  - DRUG INEFFECTIVE [None]
  - DRY MOUTH [None]
  - DYSARTHRIA [None]
  - HALLUCINATION, VISUAL [None]
  - HYPERHIDROSIS [None]
  - INITIAL INSOMNIA [None]
  - INSOMNIA [None]
  - NIGHTMARE [None]
  - PAIN [None]
  - SOMNOLENCE [None]
  - SPEECH DISORDER [None]
  - TACHYCARDIA [None]
  - VERTIGO [None]
  - VOMITING [None]
